FAERS Safety Report 20872766 (Version 2)
Quarter: 2022Q2

REPORT INFORMATION
  Report Type: Spontaneous
  Country: JP (occurrence: JP)
  Receive Date: 20220525
  Receipt Date: 20220606
  Transmission Date: 20220721
  Serious: Yes (Other)
  Sender: FDA-Public Use
  Company Number: JP-BRISTOL-MYERS SQUIBB COMPANY-2022-042258

PATIENT
  Age: 63 Year
  Sex: Female

DRUGS (4)
  1. YERVOY [Suspect]
     Active Substance: IPILIMUMAB
     Indication: Malignant melanoma
     Route: 065
  2. OPDIVO [Suspect]
     Active Substance: NIVOLUMAB
     Indication: Malignant melanoma
     Route: 041
  3. CORTRIL [Suspect]
     Active Substance: HYDROCORTISONE
     Indication: Immune-mediated enterocolitis
     Dosage: 1 TABLET(10MG) IN THE MORNING, 0.5 TABLET(5MG) IN THE EVENING, TOTAL 1.5 TABLETS(15MG)
     Route: 048
  4. BUDESONIDE [Concomitant]
     Active Substance: BUDESONIDE
     Indication: Immune-mediated enterocolitis
     Route: 065

REACTIONS (2)
  - Immune-mediated enterocolitis [Unknown]
  - Fracture [Unknown]
